FAERS Safety Report 5526664-7 (Version None)
Quarter: 2007Q4

REPORT INFORMATION
  Report Type: 
  Country: None (occurrence: None)
  Receive Date: 20071127
  Receipt Date: 20071114
  Transmission Date: 20080405
  Serious: Yes (Hospitalization)
  Sender: FDA-Public Use
  Company Number: FI-AMGEN-US252438

PATIENT
  Sex: Female
  Weight: 47.8 kg

DRUGS (17)
  1. ENBREL [Suspect]
     Indication: JUVENILE ARTHRITIS
     Route: 058
     Dates: start: 20050224, end: 20070829
  2. GANCICLOVIR SODIUM [Suspect]
     Indication: ENCEPHALITIS VIRAL
     Dosage: UNSPECIFIED
     Route: 042
     Dates: start: 20070905, end: 20070918
  3. MULTITABS [Concomitant]
     Route: 048
  4. CALCICHEW [Concomitant]
     Dosage: UNSPECIFIED
     Route: 065
  5. PRONAXEN [Concomitant]
     Route: 048
  6. PRONAXEN [Concomitant]
     Route: 048
  7. ZOVIRAX [Concomitant]
     Indication: ENCEPHALITIS VIRAL
     Dosage: UNSPECIFIED
     Route: 042
     Dates: start: 20070830, end: 20070904
  8. CORTISONE ACETATE TAB [Concomitant]
     Indication: JUVENILE ARTHRITIS
     Dosage: 1 DOSE EVERY 1 TOT
     Route: 014
     Dates: start: 20070601, end: 20070601
  9. ROCEPHALIN [Concomitant]
     Indication: LEUKOCYTOSIS
     Dosage: UNSPECIFIED
     Route: 042
     Dates: start: 20070831, end: 20070913
  10. CLOXACILLIN SODIUM [Concomitant]
     Indication: INFECTION
     Dosage: UNSPECIFIED
     Route: 042
     Dates: start: 20070918
  11. CEFTAZIDIME [Concomitant]
     Indication: INFECTION
     Dosage: UNSPECIFIED
     Route: 042
     Dates: start: 20070918
  12. GRANOCYTE [Concomitant]
     Indication: BONE MARROW FAILURE
     Dosage: UNSPECIFIED
     Route: 065
     Dates: start: 20070918
  13. GRANOCYTE [Concomitant]
     Indication: NEUTROPENIA
  14. NEUPOGEN [Concomitant]
     Indication: BONE MARROW FAILURE
     Dosage: UNSPECIFIED
     Route: 058
     Dates: start: 20070918
  15. NEUPOGEN [Concomitant]
     Indication: NEUTROPENIA
  16. IMUREL [Concomitant]
     Indication: JUVENILE ARTHRITIS
     Route: 048
     Dates: start: 20041015, end: 20070829
  17. DOXIMYCIN [Concomitant]
     Indication: ENCEPHALITIS VIRAL
     Dosage: UNSPECIFIED
     Route: 042
     Dates: start: 20070830, end: 20070913

REACTIONS (7)
  - ANXIETY [None]
  - BONE MARROW FAILURE [None]
  - ENCEPHALITIS VIRAL [None]
  - FEAR [None]
  - INFECTION [None]
  - JOINT INJURY [None]
  - NEUTROPENIA [None]
